FAERS Safety Report 9296028 (Version 1)
Quarter: 2013Q2

REPORT INFORMATION
  Report Type: Spontaneous
  Country: US (occurrence: US)
  Receive Date: 20130517
  Receipt Date: 20130517
  Transmission Date: 20140414
  Serious: Yes (Hospitalization, Other)
  Sender: FDA-Public Use
  Company Number: US-TEVA-405156USA

PATIENT
  Age: 47 Year
  Sex: Female

DRUGS (12)
  1. PROGESTERONE [Suspect]
     Indication: MENOPAUSAL SYMPTOMS
     Dosage: 1 GRAM DAILY;
     Dates: start: 2001, end: 2001
  2. ARMOUR THYROID [Suspect]
     Indication: HYPOTHYROIDISM
     Dosage: 180 MG (120 MG AM, 60 MG PM)
     Route: 048
     Dates: start: 2001, end: 20130318
  3. ARMOUR THYROID [Suspect]
     Dosage: 120 MG (90 MG AM; 30 MG PM)
     Route: 048
     Dates: start: 20130319, end: 2013
  4. ARMOUR THYROID [Suspect]
     Dosage: 90 MG (60 MG AM; 30 MG PM)
     Route: 048
     Dates: start: 2013, end: 2013
  5. ARMOUR THYROID [Suspect]
     Dosage: 60 MG (30 MG AM; 30 MG PM)
     Route: 048
     Dates: start: 2013, end: 2013
  6. ARMOUR THYROID [Suspect]
     Indication: HYPOTHYROIDISM
     Dosage: 30 MILLIGRAM DAILY;
     Route: 048
     Dates: start: 2013, end: 20130425
  7. DHEA [Concomitant]
  8. MAGNESIUM [Concomitant]
  9. COQ10 [Concomitant]
  10. VITAMIN C [Concomitant]
  11. MVI [Concomitant]
  12. CALCIUM [Concomitant]
     Dosage: 600 MILLIGRAM DAILY;
     Route: 048

REACTIONS (7)
  - Loss of consciousness [Recovered/Resolved]
  - Concussion [Recovered/Resolved]
  - Joint injury [Recovering/Resolving]
  - Atrial fibrillation [Recovered/Resolved]
  - Thyroxine free increased [Unknown]
  - Blood thyroid stimulating hormone decreased [Unknown]
  - Blood pressure decreased [Unknown]
